FAERS Safety Report 17099868 (Version 1)
Quarter: 2019Q4

REPORT INFORMATION
  Report Type: Spontaneous
  Country: FR (occurrence: FR)
  Receive Date: 20191202
  Receipt Date: 20191202
  Transmission Date: 20200122
  Serious: Yes (Hospitalization)
  Sender: FDA-Public Use
  Company Number: FR-MYLANLABS-2019M1115495

PATIENT
  Age: 68 Year
  Sex: Female
  Weight: 45 kg

DRUGS (18)
  1. PANTOPRAZOLE [Concomitant]
     Active Substance: PANTOPRAZOLE
     Indication: GASTROOESOPHAGEAL REFLUX DISEASE
     Dosage: 0-0-1
     Route: 048
     Dates: start: 201901
  2. LEVOTHYROX [Concomitant]
     Active Substance: LEVOTHYROXINE
     Indication: HYPOTHYROIDISM
     Dosage: 1-0-0
     Route: 048
  3. PREDNISONE. [Concomitant]
     Active Substance: PREDNISONE
     Indication: ORGANISING PNEUMONIA
     Dosage: 1 PRISE LE MATIN PENDANT 4 JOURS
     Route: 048
     Dates: start: 201510
  4. KARDEGIC [Concomitant]
     Active Substance: ASPIRIN DL-LYSINE
     Indication: PROPHYLAXIS
     Dosage: 1-0-0
     Route: 048
     Dates: start: 201709
  5. ETOPOSIDE. [Suspect]
     Active Substance: ETOPOSIDE
     Indication: SMALL CELL LUNG CANCER
     Dosage: J1, J2,J3
     Route: 042
     Dates: start: 20190110, end: 20190515
  6. DILTIAZEM. [Concomitant]
     Active Substance: DILTIAZEM
     Indication: HYPERTENSION
     Dosage: 1-0-0
     Route: 048
     Dates: start: 201709
  7. NEFOPAM [Concomitant]
     Active Substance: NEFOPAM
     Indication: ANALGESIC INTERVENTION SUPPORTIVE THERAPY
     Dosage: SI BESOIN MAX 4/JOUR
     Route: 048
     Dates: start: 201905
  8. FUROSEMIDE. [Concomitant]
     Active Substance: FUROSEMIDE
     Indication: HYPERTENSION
     Dosage: 1.5-0-0 ( FUROSEMIDE 40 MG)
     Route: 048
     Dates: start: 201902
  9. IPRATROPIUM BROMIDE MONOHYDRATE [Concomitant]
     Active Substance: IPRATROPIUM BROMIDE
     Indication: CHRONIC OBSTRUCTIVE PULMONARY DISEASE
     Dosage: 1-1-1
     Route: 055
     Dates: start: 201905
  10. ZOPHREN                            /00955301/ [Concomitant]
     Active Substance: ONDANSETRON
     Indication: ANTIEMETIC SUPPORTIVE CARE
     Dosage: SI BESOIN
     Route: 048
     Dates: start: 201902, end: 201905
  11. DIFFU K [Concomitant]
     Active Substance: POTASSIUM CHLORIDE
     Indication: HYPOKALAEMIA
     Dosage: 2-0-2
     Route: 048
     Dates: start: 201902
  12. PRAVASTATINE SODIUM ACCORD [Concomitant]
     Active Substance: PRAVASTATIN SODIUM
     Indication: DYSLIPIDAEMIA
     Dosage: 0-0-1
     Route: 048
     Dates: start: 201709
  13. IPRATROPIUM BROMIDE\FENOTEROL HYDROBROMIDE [Concomitant]
     Active Substance: FENOTEROL HYDROBROMIDE\IPRATROPIUM BROMIDE
     Indication: CHRONIC OBSTRUCTIVE PULMONARY DISEASE
     Dosage: SI BESOIN
     Route: 055
     Dates: start: 201709
  14. ALPRAZOLAM. [Concomitant]
     Active Substance: ALPRAZOLAM
     Indication: ANXIETY
     Dosage: 0-0-1
     Route: 048
     Dates: start: 201902
  15. CARBOPLATINE [Suspect]
     Active Substance: CARBOPLATIN
     Indication: SMALL CELL LUNG CANCER
     Dosage: 475 MILLIGRAM, CYCLE
     Route: 042
     Dates: start: 20190110, end: 20190513
  16. ULTIBRO BREEZHALER [Concomitant]
     Active Substance: GLYCOPYRRONIUM\INDACATEROL
     Indication: CHRONIC OBSTRUCTIVE PULMONARY DISEASE
     Dosage: 1-0-0
     Route: 055
     Dates: start: 201709
  17. ZARZIO [Concomitant]
     Active Substance: FILGRASTIM
     Indication: FEBRILE NEUTROPENIA
     Dosage: 1 INJECTION/JOUR
     Route: 058
     Dates: start: 20190517, end: 20190522
  18. SALBUTAMOL [Concomitant]
     Active Substance: ALBUTEROL
     Indication: CHRONIC OBSTRUCTIVE PULMONARY DISEASE
     Dosage: 1-1-1
     Route: 055
     Dates: start: 201905

REACTIONS (1)
  - Ventricular dysfunction [Not Recovered/Not Resolved]

NARRATIVE: CASE EVENT DATE: 20190603
